FAERS Safety Report 6965393-X (Version None)
Quarter: 2010Q3

REPORT INFORMATION
  Report Type: 
  Country: None (occurrence: None)
  Receive Date: 20100903
  Receipt Date: 20100824
  Transmission Date: 20110219
  Serious: Yes (Hospitalization)
  Sender: FDA-Public Use
  Company Number: A0878234A

PATIENT
  Age: 55 Year
  Sex: Male

DRUGS (1)
  1. BACTROBAN [Suspect]
     Route: 061

REACTIONS (2)
  - DRUG ADMINISTRATION ERROR [None]
  - EYE IRRITATION [None]
